FAERS Safety Report 19970199 (Version 1)
Quarter: 2021Q4

REPORT INFORMATION
  Report Type: Spontaneous
  Country: CN (occurrence: CN)
  Receive Date: 20211019
  Receipt Date: 20211019
  Transmission Date: 20220303
  Serious: Yes (Hospitalization)
  Sender: FDA-Public Use
  Company Number: CN-PFIZER INC-202101342123

PATIENT
  Age: 50 Year
  Sex: Male

DRUGS (4)
  1. CEFOPERAZONE SODIUM\SULBACTAM SODIUM [Suspect]
     Active Substance: CEFOPERAZONE SODIUM\SULBACTAM SODIUM
     Indication: Anti-infective therapy
     Dosage: 3 G, 3X/DAY
     Dates: start: 20210607, end: 20210617
  2. FRAGMIN [Suspect]
     Active Substance: DALTEPARIN SODIUM
     Indication: Anticoagulant therapy
     Dosage: 5000 IU, 1X/DAY
     Route: 058
     Dates: start: 20210613, end: 20210616
  3. SUFENTANIL CITRATE [Concomitant]
     Active Substance: SUFENTANIL CITRATE
     Indication: Anaesthesia
     Dosage: 100 UG, 1X/DAY
     Dates: start: 20210607, end: 20210617
  4. KANG QUAN LI [Concomitant]
     Indication: Nutritional supplementation
     Dosage: 100 ML, 1X/DAY
     Route: 045
     Dates: start: 20210613, end: 20210616

REACTIONS (2)
  - Platelet count increased [Recovering/Resolving]
  - Off label use [Unknown]

NARRATIVE: CASE EVENT DATE: 20210607
